FAERS Safety Report 12583261 (Version 1)
Quarter: 2016Q3

REPORT INFORMATION
  Report Type: Report from Study
  Country: CO (occurrence: CO)
  Receive Date: 20160722
  Receipt Date: 20160722
  Transmission Date: 20161109
  Serious: Yes (Other)
  Sender: FDA-Public Use
  Company Number: PHHY2016CO055867

PATIENT
  Age: 48 Year
  Sex: Female
  Weight: 84 kg

DRUGS (3)
  1. TRASTUZUMAB [Concomitant]
     Active Substance: TRASTUZUMAB
     Indication: BREAST CANCER
     Dosage: 440 MG, QMO ( (EVERY 21 DAYS)
     Route: 042
  2. TYKERB [Suspect]
     Active Substance: LAPATINIB DITOSYLATE
     Dosage: 250 MG, TID (3 TABLETS)
     Route: 048
     Dates: start: 20160421, end: 20160718
  3. TYKERB [Suspect]
     Active Substance: LAPATINIB DITOSYLATE
     Indication: BREAST CANCER
     Dosage: 250 MG, TID (3 TABLES)
     Route: 048
     Dates: start: 20160307

REACTIONS (13)
  - Sciatica [Unknown]
  - Rash [Unknown]
  - Laceration [Unknown]
  - Haemorrhage [Unknown]
  - Dental caries [Unknown]
  - Urticaria [Unknown]
  - Hypoaesthesia [Unknown]
  - Insomnia [Unknown]
  - Pruritus [Unknown]
  - Hypersensitivity [Unknown]
  - Discomfort [Unknown]
  - Speech disorder [Unknown]
  - Stomatitis [Unknown]

NARRATIVE: CASE EVENT DATE: 20160310
